FAERS Safety Report 22939823 (Version 2)
Quarter: 2023Q4

REPORT INFORMATION
  Report Type: Spontaneous
  Country: US (occurrence: US)
  Receive Date: 20230913
  Receipt Date: 20231128
  Transmission Date: 20240109
  Serious: No
  Sender: FDA-Public Use
  Company Number: US-INCYTE CORPORATION-2023IN008757

PATIENT

DRUGS (1)
  1. OPZELURA [Suspect]
     Active Substance: RUXOLITINIB PHOSPHATE
     Indication: Dermatitis atopic
     Dosage: UNK, QD
     Route: 061
     Dates: start: 20221221

REACTIONS (1)
  - Dermatitis atopic [Unknown]
